FAERS Safety Report 17241161 (Version 1)
Quarter: 2019Q4

REPORT INFORMATION
  Report Type: Spontaneous
  Country: US (occurrence: US)
  Receive Date: 20191211
  Receipt Date: 20191211
  Transmission Date: 20200122
  Serious: No
  Sender: FDA-Public Use
  Company Number: None

PATIENT

DRUGS (2)
  1. NOVOLIN N [Suspect]
     Active Substance: INSULIN HUMAN
  2. NOVOLIN R [Suspect]
     Active Substance: INSULIN HUMAN

REACTIONS (4)
  - Product name confusion [None]
  - Hypoglycaemia [None]
  - Product prescribing error [None]
  - Incorrect dose administered [None]
